FAERS Safety Report 10070839 (Version 2)
Quarter: 2014Q2

REPORT INFORMATION
  Report Type: Spontaneous
  Country: JP (occurrence: JP)
  Receive Date: 20140410
  Receipt Date: 20140423
  Transmission Date: 20141212
  Serious: No
  Sender: FDA-Public Use
  Company Number: JP-009507513-1404JPN002027

PATIENT
  Age: 40 Year
  Sex: Female
  Weight: 69 kg

DRUGS (4)
  1. ESLAX [Suspect]
     Indication: NEUROMUSCULAR BLOCKADE
     Dosage: 100 MG, DIVIDED DOSE FREQUENCY UNKNOWN
     Route: 042
  2. PROPOFOL [Concomitant]
     Indication: INDUCTION OF ANAESTHESIA
     Dosage: 200 MG, DIVIDED DOSE, FREQUENCY UNKNOWN
     Route: 042
  3. SEVOFLURANE [Concomitant]
     Indication: MAINTENANCE OF ANAESTHESIA
     Dosage: DOSAGE TEXT: 1.5-0.8%, DAILY DOSE UNKNOWN
     Route: 055
  4. REMIFENTANIL HYDROCHLORIDE [Concomitant]
     Indication: MAINTENANCE OF ANAESTHESIA
     Dosage: 0.15-0.3MICROGRAM/KG/MIN, DAILY DOSE UNKNOWN
     Route: 055

REACTIONS (1)
  - Maternal exposure during pregnancy [Unknown]
